FAERS Safety Report 4351348-0 (Version None)
Quarter: 2004Q2

REPORT INFORMATION
  Report Type: 
  Country: None (occurrence: None)
  Receive Date: 20040503
  Receipt Date: 20040421
  Transmission Date: 20050107
  Serious: Yes (Hospitalization)
  Sender: FDA-Public Use
  Company Number: JP-BRISTOL-MYERS SQUIBB COMPANY-12572459

PATIENT
  Age: 74 Year
  Sex: Male

DRUGS (1)
  1. VEPESID [Suspect]
     Indication: LYMPHOMA
     Route: 042
     Dates: start: 20011201

REACTIONS (1)
  - SMALL INTESTINAL STENOSIS [None]
